FAERS Safety Report 20757712 (Version 3)
Quarter: 2022Q3

REPORT INFORMATION
  Report Type: Report from Study
  Country: DE (occurrence: DE)
  Receive Date: 20220427
  Receipt Date: 20220921
  Transmission Date: 20221027
  Serious: Yes (Hospitalization, Other)
  Sender: FDA-Public Use
  Company Number: DE-TAKEDA-DE201917394

PATIENT
  Age: 63 Year
  Sex: Male
  Weight: 62 kg

DRUGS (48)
  1. TEDUGLUTIDE [Suspect]
     Active Substance: TEDUGLUTIDE
     Indication: Short-bowel syndrome
     Dosage: 3.1 MILLIGRAM, QD
     Route: 042
     Dates: start: 20170504, end: 20200729
  2. TEDUGLUTIDE [Suspect]
     Active Substance: TEDUGLUTIDE
     Indication: Short-bowel syndrome
     Dosage: 3.1 MILLIGRAM, QD
     Route: 042
     Dates: start: 20170504, end: 20200729
  3. TEDUGLUTIDE [Suspect]
     Active Substance: TEDUGLUTIDE
     Indication: Short-bowel syndrome
     Dosage: 3.1 MILLIGRAM, QD
     Route: 042
     Dates: start: 20170504, end: 20200729
  4. TEDUGLUTIDE [Suspect]
     Active Substance: TEDUGLUTIDE
     Indication: Short-bowel syndrome
     Dosage: 3.1 MILLIGRAM, QD
     Route: 042
     Dates: start: 20170504, end: 20200729
  5. CEFUROXIME [Concomitant]
     Active Substance: CEFUROXIME
     Indication: Infection
     Dosage: UNK
     Route: 065
     Dates: start: 201812, end: 201812
  6. METRONIDAZOLE [Concomitant]
     Active Substance: METRONIDAZOLE
     Indication: Infection
     Dosage: UNK
     Route: 065
     Dates: start: 201812, end: 201812
  7. LORATADINE [Concomitant]
     Active Substance: LORATADINE
     Indication: Product used for unknown indication
     Dosage: UNK
     Route: 065
     Dates: start: 201805
  8. OPTIDERM F [Concomitant]
     Indication: Prurigo
     Dosage: UNK
     Route: 061
     Dates: start: 201801, end: 201805
  9. ESPUMISAN [SIMETICONE] [Concomitant]
     Indication: Product used for unknown indication
     Dosage: UNK
     Route: 065
  10. IMODIUM [Concomitant]
     Active Substance: LOPERAMIDE HYDROCHLORIDE
     Indication: Product used for unknown indication
     Dosage: UNK
     Route: 065
  11. CALCIUM\CHOLECALCIFEROL [Concomitant]
     Active Substance: CALCIUM\CHOLECALCIFEROL
     Indication: Product used for unknown indication
     Dosage: UNK
     Route: 065
  12. CETIDEX [Concomitant]
     Indication: Product used for unknown indication
     Dosage: UNK
     Route: 065
  13. SELENASE [SODIUM SELENATE] [Concomitant]
     Indication: Product used for unknown indication
     Dosage: UNK
     Route: 065
  14. NOVALGIN (METAMIZOLE SODIUM) [Concomitant]
     Active Substance: METAMIZOLE SODIUM
     Indication: Product used for unknown indication
     Dosage: UNK
     Route: 065
  15. TILICOMP [Concomitant]
     Indication: Product used for unknown indication
     Dosage: UNK
     Route: 065
  16. METHOTREXATE [Concomitant]
     Active Substance: METHOTREXATE
     Indication: Pemphigoid
     Dosage: 10 MILLIGRAM, 1/WEEK
     Route: 058
     Dates: start: 201904
  17. FOLIC ACID [Concomitant]
     Active Substance: FOLIC ACID
     Indication: Product used for unknown indication
     Dosage: UNK
     Route: 065
  18. PANTOPRAZOLE [Concomitant]
     Active Substance: PANTOPRAZOLE
     Indication: Product used for unknown indication
     Dosage: 40 MILLIGRAM, QD
     Route: 048
  19. PREDNISOLONE [Concomitant]
     Active Substance: PREDNISOLONE
     Indication: Product used for unknown indication
     Dosage: UNK
     Route: 065
  20. IRON [Concomitant]
     Active Substance: IRON
     Indication: Normochromic normocytic anaemia
     Dosage: UNK
     Route: 042
     Dates: start: 202007, end: 202008
  21. FOLIC ACID [Concomitant]
     Active Substance: FOLIC ACID
     Indication: Normochromic normocytic anaemia
     Dosage: UNK
     Route: 048
     Dates: start: 202007, end: 202008
  22. DOXYCYCLINE [Concomitant]
     Active Substance: DOXYCYCLINE
     Indication: Pemphigoid
     Dosage: 200 MILLIGRAM, QD
     Route: 048
     Dates: start: 20200615
  23. CEFEPIME HYDROCHLORIDE [Concomitant]
     Active Substance: CEFEPIME HYDROCHLORIDE
     Indication: Device related sepsis
     Dosage: 2.38 GRAM, TID
     Route: 048
     Dates: start: 20200723, end: 20200804
  24. Mucofalk [Concomitant]
     Indication: Antidiarrhoeal supportive care
     Dosage: 1 INTERNATIONAL UNIT, TID
     Route: 048
     Dates: end: 201805
  25. OMNIFLORA [Concomitant]
     Indication: Antidiarrhoeal supportive care
     Dosage: 2 INTERNATIONAL UNIT, TID
     Route: 048
     Dates: end: 201805
  26. LOPERAMIDE [Concomitant]
     Active Substance: LOPERAMIDE
     Indication: Antidiarrhoeal supportive care
     Dosage: 2 MILLIGRAM, TID
     Route: 048
  27. METOPROLOL [Concomitant]
     Active Substance: METOPROLOL
     Dosage: 47.5 MILLIGRAM, BID
     Route: 048
     Dates: end: 20160629
  28. METOPROLOL [Concomitant]
     Active Substance: METOPROLOL
     Dosage: 24 MILLIGRAM, QD
     Route: 048
     Dates: start: 20160629, end: 2016
  29. CORTISONE [Concomitant]
     Active Substance: CORTISONE
     Indication: Appetite disorder
     Dosage: 999 UNK
     Route: 048
     Dates: end: 201612
  30. LEVOCETIRIZINE DIHYDROCHLORIDE [Concomitant]
     Active Substance: LEVOCETIRIZINE DIHYDROCHLORIDE
     Dosage: 5 MILLIGRAM, BID
     Route: 048
  31. FLUCONAZOLE [Concomitant]
     Active Substance: FLUCONAZOLE
     Indication: Oesophageal candidiasis
     Dosage: 200 MILLIGRAM, QD
     Route: 048
     Dates: start: 20170313, end: 20170326
  32. FLUCONAZOLE [Concomitant]
     Active Substance: FLUCONAZOLE
     Dosage: 2000 MILLIGRAM
     Route: 042
     Dates: start: 202006, end: 20200701
  33. ZOFRAN [Concomitant]
     Active Substance: ONDANSETRON HYDROCHLORIDE
     Indication: Nausea
     Dosage: 8 MILLIGRAM, QD
     Route: 060
     Dates: start: 20170313, end: 20170313
  34. NITROFURANTOIN [Concomitant]
     Active Substance: NITROFURANTOIN
     Indication: Urinary tract infection
     Dosage: UNK
     Dates: start: 201705, end: 201705
  35. LORATADINE [Concomitant]
     Active Substance: LORATADINE
     Indication: Prurigo
     Dosage: 5 MILLIGRAM, BID
     Route: 048
     Dates: start: 201801, end: 201801
  36. SELENIUM [Concomitant]
     Active Substance: SELENIUM
     Indication: Selenium deficiency
     Dosage: UNK
     Route: 048
  37. VITAMIN D [Concomitant]
     Active Substance: VITAMIN D NOS
     Indication: Vitamin supplementation
     Dosage: UNK
     Route: 048
  38. PREDNISOLONE [Concomitant]
     Active Substance: PREDNISOLONE
     Indication: Pemphigoid
     Dosage: 20 MILLIGRAM
     Route: 065
     Dates: start: 201904, end: 201907
  39. PREDNISOLONE [Concomitant]
     Active Substance: PREDNISOLONE
     Dosage: 20 MILLIGRAM, QD
     Route: 065
     Dates: start: 2020
  40. CASPOFUNGIN [Concomitant]
     Active Substance: CASPOFUNGIN
     Indication: Pemphigoid
     Dosage: UNK
     Route: 058
     Dates: start: 202003
  41. PIPERACILLIN [Concomitant]
     Active Substance: PIPERACILLIN
     Indication: Peritonitis
     Dosage: UNK
     Route: 065
     Dates: start: 202003, end: 20200403
  42. TAZOBACTAM [Concomitant]
     Active Substance: TAZOBACTAM
     Indication: Peritonitis
     Dosage: UNK
     Route: 065
     Dates: start: 202003, end: 20200403
  43. Dermoxin [Concomitant]
     Indication: Pemphigoid
     Dosage: UNK
     Route: 061
     Dates: start: 202003
  44. Fuconazole [Concomitant]
     Indication: Peritonitis
     Dosage: UNK
     Route: 065
     Dates: start: 202003, end: 20200403
  45. AMPHOTERICIN B [Concomitant]
     Active Substance: AMPHOTERICIN B
     Indication: Oesophageal candidiasis
     Dosage: 500 MILLIGRAM, TID
     Route: 061
     Dates: start: 20200701
  46. MEROPENEM [Concomitant]
     Active Substance: MEROPENEM
     Indication: Device related sepsis
  47. VANCOMYCIN [Concomitant]
     Active Substance: VANCOMYCIN
     Indication: Device related sepsis
     Dosage: 855 MILLIGRAM, TID
     Route: 042
     Dates: start: 20200722, end: 20200804
  48. ASPIRIN [Concomitant]
     Active Substance: ASPIRIN
     Indication: Cerebrovascular accident
     Dosage: 100 MILLIGRAM, QD
     Route: 048
     Dates: start: 202006

REACTIONS (2)
  - Pemphigoid [Not Recovered/Not Resolved]
  - Haematuria [Recovered/Resolved]

NARRATIVE: CASE EVENT DATE: 20170310
